FAERS Safety Report 9270304 (Version 1)
Quarter: 2013Q2

REPORT INFORMATION
  Report Type: Spontaneous
  Country: US (occurrence: US)
  Receive Date: 20130503
  Receipt Date: 20130503
  Transmission Date: 20140414
  Serious: Yes (Hospitalization)
  Sender: FDA-Public Use
  Company Number: US-BAYER-2013-053980

PATIENT
  Age: 27 Year
  Sex: Female

DRUGS (7)
  1. GIANVI [Suspect]
  2. PAROXETINE [Concomitant]
     Dosage: UNK
     Dates: start: 20120110
  3. LORATADINE [Concomitant]
     Dosage: UNK
     Dates: start: 20111110, end: 20120110
  4. SUMATRIPTAN [Concomitant]
     Dosage: UNK
     Dates: start: 20111110
  5. METOCLOPRAMIDE [Concomitant]
     Dosage: UNK
     Dates: start: 20120129
  6. DICYCLOMINE [Concomitant]
     Dosage: UNK
     Dates: start: 20120129
  7. YAZ [Suspect]

REACTIONS (3)
  - Pelvic venous thrombosis [None]
  - Deep vein thrombosis [None]
  - Thrombophlebitis superficial [None]
